FAERS Safety Report 5979559-9 (Version None)
Quarter: 2008Q4

REPORT INFORMATION
  Report Type: 
  Country: None (occurrence: None)
  Receive Date: 20081204
  Receipt Date: 20081124
  Transmission Date: 20090506
  Serious: Yes (Hospitalization)
  Sender: FDA-Public Use
  Company Number: US-ELI_LILLY_AND_COMPANY-US200811005668

PATIENT
  Sex: Male

DRUGS (10)
  1. CYMBALTA [Suspect]
     Indication: DEPRESSION
     Dosage: 60 MG, DAILY (1/D)
     Dates: start: 20080501
  2. CYMBALTA [Suspect]
     Dosage: 90 MG, UNK
  3. CYMBALTA [Suspect]
     Dosage: 60 MG, UNK
  4. COUMADIN [Concomitant]
  5. NOVOLOG [Concomitant]
     Dosage: 85 U, UNK
  6. LASIX [Concomitant]
  7. NEXIUM [Concomitant]
  8. POTASSIUM CHLORIDE [Concomitant]
  9. ZOCOR [Concomitant]
  10. XANAX [Concomitant]

REACTIONS (4)
  - BLOOD GLUCOSE FLUCTUATION [None]
  - INSOMNIA [None]
  - SOMNOLENCE [None]
  - VISION BLURRED [None]
